FAERS Safety Report 11971736 (Version 1)
Quarter: 2016Q1

REPORT INFORMATION
  Report Type: Report from Study
  Country: DE (occurrence: DE)
  Receive Date: 20160128
  Receipt Date: 20160128
  Transmission Date: 20160526
  Serious: Yes (Hospitalization)
  Sender: FDA-Public Use
  Company Number: DE-BAYER-2016-013230

PATIENT
  Age: 76 Year
  Sex: Female

DRUGS (2)
  1. ASA [Suspect]
     Active Substance: ASPIRIN
     Indication: PERIPHERAL ARTERIAL OCCLUSIVE DISEASE
  2. CLOPIDOGREL [Interacting]
     Active Substance: CLOPIDOGREL BISULFATE
     Indication: PERIPHERAL ARTERIAL OCCLUSIVE DISEASE
     Dosage: UNK

REACTIONS (12)
  - Exophthalmos [None]
  - Incision site haemorrhage [None]
  - Conjunctival oedema [None]
  - Choroidal haemorrhage [None]
  - Ocular retrobulbar haemorrhage [None]
  - Eyelid haematoma [None]
  - Corneal oedema [None]
  - Vitreous haemorrhage [None]
  - Conjunctival haemorrhage [Recovered/Resolved]
  - Hyphaema [None]
  - Strabismus [None]
  - Labelled drug-drug interaction medication error [None]
